FAERS Safety Report 13094957 (Version 3)
Quarter: 2019Q2

REPORT INFORMATION
  Report Type: Report from Study
  Country: US (occurrence: US)
  Receive Date: 20170106
  Receipt Date: 20190618
  Transmission Date: 20190711
  Serious: Yes (Hospitalization)
  Sender: FDA-Public Use
  Company Number: US-CELGENEUS-USA-2017010163

PATIENT
  Age: 63 Year
  Sex: Male
  Weight: 46.2 kg

DRUGS (3)
  1. THALOMID [Suspect]
     Active Substance: THALIDOMIDE
     Indication: PLASMA CELL MYELOMA
     Dosage: 400 MILLIGRAM
     Route: 048
     Dates: start: 20150320
  2. THALOMID [Suspect]
     Active Substance: THALIDOMIDE
     Dosage: 400 MILLIGRAM
     Route: 048
     Dates: start: 20150728, end: 20170323
  3. DECADRON [Suspect]
     Active Substance: DEXAMETHASONE
     Indication: PLASMA CELL MYELOMA
     Dosage: 40 MILLIGRAM
     Route: 048
     Dates: start: 20150309, end: 20170323

REACTIONS (2)
  - Anaemia [Recovered/Resolved]
  - Haematochezia [Recovered/Resolved]

NARRATIVE: CASE EVENT DATE: 20161125
